FAERS Safety Report 14007183 (Version 1)
Quarter: 2017Q3

REPORT INFORMATION
  Report Type: Spontaneous
  Country: US (occurrence: US)
  Receive Date: 20170924
  Receipt Date: 20170924
  Transmission Date: 20171128
  Serious: Yes (Life-Threatening)
  Sender: FDA-Public Use
  Company Number: None

PATIENT
  Age: 53 Year
  Sex: Male
  Weight: 106.2 kg

DRUGS (1)
  1. KENALOG [Suspect]
     Active Substance: TRIAMCINOLONE ACETONIDE
     Indication: TENDONITIS
     Dosage: OTHER FREQUENCY:ONE TIME INJECTION;OTHER ROUTE:SUBACROMIAL?
     Dates: start: 20170919, end: 20170919

REACTIONS (4)
  - Injection site abscess [None]
  - Product contamination [None]
  - Product quality issue [None]
  - Myositis [None]

NARRATIVE: CASE EVENT DATE: 20170919
